FAERS Safety Report 10339494 (Version 1)
Quarter: 2014Q3

REPORT INFORMATION
  Report Type: Spontaneous
  Country: FR (occurrence: FR)
  Receive Date: 20140724
  Receipt Date: 20140724
  Transmission Date: 20150326
  Serious: Yes (Hospitalization)
  Sender: FDA-Public Use
  Company Number: FR-ASTRAZENECA-2014SE51823

PATIENT
  Age: 27164 Day
  Sex: Male

DRUGS (18)
  1. XYLOCAINE VISCOUS [Suspect]
     Active Substance: LIDOCAINE HYDROCHLORIDE
     Route: 048
     Dates: start: 20140515
  2. LIDOCAINE AGUETTANT [Suspect]
     Active Substance: LIDOCAINE
     Dates: start: 20140515
  3. ONBREZ BREEZHALER [Concomitant]
     Active Substance: INDACATEROL
     Route: 055
  4. GAVISCON [Concomitant]
     Active Substance: ALUMINUM HYDROXIDE\MAGNESIUM CARBONATE
     Route: 048
  5. PROGRAF [Concomitant]
     Active Substance: TACROLIMUS\TACROLIMUS ANHYDROUS
     Route: 048
  6. PREDNISOLONE. [Concomitant]
     Active Substance: PREDNISOLONE
     Route: 048
  7. PREVISCAN [Concomitant]
     Active Substance: FLUINDIONE
     Route: 048
  8. LASILIX [Concomitant]
     Active Substance: FUROSEMIDE
     Route: 048
  9. ISOPTIN [Concomitant]
     Active Substance: VERAPAMIL HYDROCHLORIDE
     Route: 048
  10. XYLOCAINE NEBULIZATION [Suspect]
     Active Substance: LIDOCAINE HYDROCHLORIDE
     Route: 002
     Dates: start: 20140515
  11. BISOPROLOL [Concomitant]
     Active Substance: BISOPROLOL
     Route: 048
  12. NASACORT [Concomitant]
     Active Substance: TRIAMCINOLONE ACETONIDE
     Dosage: TWO PULVERIZATIONS EVERY MORNING
     Route: 045
  13. DIAMICRON [Concomitant]
     Active Substance: GLICLAZIDE
     Route: 048
  14. BISOPROLOL [Concomitant]
     Active Substance: BISOPROLOL
     Route: 048
  15. LOVENOX [Concomitant]
     Active Substance: ENOXAPARIN SODIUM
     Dosage: 14000 UI PER DAY
     Route: 058
  16. AZATHIOPRINE. [Concomitant]
     Active Substance: AZATHIOPRINE
     Route: 048
  17. ACTRAPID [Concomitant]
     Active Substance: INSULIN HUMAN
  18. MACROGOL [Concomitant]
     Active Substance: POLYETHYLENE GLYCOLS
     Route: 048

REACTIONS (6)
  - Somnolence [None]
  - Cardiogenic shock [None]
  - Shock [Recovered/Resolved]
  - Sepsis [None]
  - Incorrect dose administered [Recovered/Resolved]
  - Renal failure acute [None]

NARRATIVE: CASE EVENT DATE: 20140515
